FAERS Safety Report 14236060 (Version 1)
Quarter: 2017Q4

REPORT INFORMATION
  Report Type: Spontaneous
  Country: FR (occurrence: FR)
  Receive Date: 20171129
  Receipt Date: 20171129
  Transmission Date: 20180321
  Serious: Yes (Hospitalization)
  Sender: FDA-Public Use
  Company Number: FR-ROCHE-2027023

PATIENT
  Age: 65 Year
  Sex: Female

DRUGS (6)
  1. ONGLYZA [Concomitant]
     Active Substance: SAXAGLIPTIN HYDROCHLORIDE
  2. CALCITRATE/VIT D [Concomitant]
  3. COTELLIC [Concomitant]
     Active Substance: COBIMETINIB
     Indication: METASTATIC MALIGNANT MELANOMA
     Route: 048
     Dates: start: 20160104, end: 20160116
  4. TAHOR [Concomitant]
     Active Substance: ATORVASTATIN CALCIUM
     Route: 065
  5. ZELBORAF [Suspect]
     Active Substance: VEMURAFENIB
     Dosage: MORNING AND EVENING
     Route: 048
  6. ZELBORAF [Suspect]
     Active Substance: VEMURAFENIB
     Indication: METASTATIC MALIGNANT MELANOMA
     Route: 048
     Dates: start: 20160104, end: 20160116

REACTIONS (12)
  - Tongue ulceration [Recovered/Resolved]
  - Asthenia [Recovered/Resolved]
  - Hyperthermia [Recovered/Resolved]
  - Headache [Recovered/Resolved]
  - Food aversion [Recovered/Resolved]
  - Arthralgia [Recovered/Resolved]
  - Chills [Recovered/Resolved]
  - Rash macular [Recovered/Resolved]
  - Enanthema [Recovered/Resolved]
  - Lymphopenia [Recovered/Resolved]
  - Rash erythematous [Recovered/Resolved]
  - Diarrhoea [Recovered/Resolved]

NARRATIVE: CASE EVENT DATE: 20160113
